FAERS Safety Report 9409033 (Version 1)
Quarter: 2013Q1

REPORT INFORMATION
  Report Type: Spontaneous
  Country: ES (occurrence: None)
  Receive Date: 20130325
  Receipt Date: 20130325
  Transmission Date: 20140127
  Serious: Yes (Hospitalization)
  Sender: FDA-Public Use
  Company Number: 2012-7939

PATIENT
  Sex: Female

DRUGS (3)
  1. AZZALURE (BOTULINUM TOXIN TYPE A) (BOTULINUM TOXIN TYPE A) [Suspect]
     Indication: SKIN WRINKLING
     Dosage: 1 IN 1 CYCLE
     Route: 030
     Dates: start: 201102, end: 201102
  2. AZZALURE (BOTULINUM TOXIN TYPE A) (BOTULINUM TOXIN TYPE A) [Suspect]
     Indication: OFF LABEL USE
     Dosage: 1 IN 1 CYCLE
     Route: 030
     Dates: start: 201102, end: 201102
  3. RESTYLANE [Suspect]
     Indication: SKIN WRINKLING
     Dates: start: 201009, end: 201009

REACTIONS (10)
  - Convulsion [None]
  - Sinusitis [None]
  - Oedema [None]
  - Inflammation [None]
  - Tremor [None]
  - Nausea [None]
  - Drug hypersensitivity [None]
  - Hypotension [None]
  - Autonomic nervous system imbalance [None]
  - Swelling face [None]
